FAERS Safety Report 17499552 (Version 2)
Quarter: 2020Q2

REPORT INFORMATION
  Report Type: Spontaneous
  Country: NL (occurrence: NL)
  Receive Date: 20200305
  Receipt Date: 20200625
  Transmission Date: 20200713
  Serious: Yes (Other)
  Sender: FDA-Public Use
  Company Number: NL-TEVA-2019-NL-1116298

PATIENT
  Sex: Female

DRUGS (1)
  1. LEVODOPA/CARBIDOPA 100/25 TEVA [Suspect]
     Active Substance: CARBIDOPA\LEVODOPA
     Dosage: FORM STRENGTH: TABLET 100/25 MG
     Route: 065

REACTIONS (7)
  - Nausea [Unknown]
  - Gait disturbance [Unknown]
  - Condition aggravated [Unknown]
  - Product substitution issue [Unknown]
  - Asthenia [Unknown]
  - Hypophagia [Unknown]
  - Physical deconditioning [Unknown]
